FAERS Safety Report 6753626-4 (Version None)
Quarter: 2010Q2

REPORT INFORMATION
  Report Type: 
  Country: None (occurrence: None)
  Receive Date: 20100601
  Receipt Date: 20100521
  Transmission Date: 20101027
  Serious: Yes (Other)
  Sender: FDA-Public Use
  Company Number: DSA_43177_2010

PATIENT
  Sex: Male

DRUGS (10)
  1. XENAZINE [Suspect]
     Indication: DYSKINESIA
     Dosage: (12.5 MG QD ORAL), (12.5 MG BID ORAL), (12.5 MG TID ORAL)
     Route: 048
     Dates: start: 20100310, end: 20100316
  2. XENAZINE [Suspect]
     Indication: DYSKINESIA
     Dosage: (12.5 MG QD ORAL), (12.5 MG BID ORAL), (12.5 MG TID ORAL)
     Route: 048
     Dates: start: 20100317, end: 20100416
  3. XENAZINE [Suspect]
     Indication: DYSKINESIA
     Dosage: (12.5 MG QD ORAL), (12.5 MG BID ORAL), (12.5 MG TID ORAL)
     Route: 048
     Dates: start: 20100417
  4. PARLODEL [Concomitant]
  5. LEVOXYL [Concomitant]
  6. SIMVASTATIN [Concomitant]
  7. SEROQUEL [Concomitant]
  8. CITALOPRAM [Concomitant]
  9. COGENTIN [Concomitant]
  10. MULTI-VITAMINS [Concomitant]

REACTIONS (10)
  - AGGRESSION [None]
  - BIPOLAR DISORDER [None]
  - CONDITION AGGRAVATED [None]
  - CRYING [None]
  - FEAR [None]
  - PARANOIA [None]
  - SCHIZOPHRENIA [None]
  - SOMNOLENCE [None]
  - SPEECH DISORDER [None]
  - UNEVALUABLE EVENT [None]
